FAERS Safety Report 14347759 (Version 13)
Quarter: 2019Q2

REPORT INFORMATION
  Report Type: Spontaneous
  Country: US (occurrence: US)
  Receive Date: 20180103
  Receipt Date: 20190410
  Transmission Date: 20190711
  Serious: Yes (Hospitalization, Other)
  Sender: FDA-Public Use
  Company Number: US-PFIZER INC-2017554957

PATIENT
  Age: 79 Year
  Sex: Female
  Weight: 68.48 kg

DRUGS (7)
  1. INLYTA [Suspect]
     Active Substance: AXITINIB
     Dosage: 5 MG, 2X/DAY;(5 MG TABLET BY MOUTH TWICE A DAY)
     Route: 048
     Dates: end: 201902
  2. ESOMEPRAZOLE. [Concomitant]
     Active Substance: ESOMEPRAZOLE MAGNESIUM
     Indication: DYSPEPSIA
     Dosage: 40 MG, ONCE DAILY
     Route: 048
  3. INLYTA [Suspect]
     Active Substance: AXITINIB
     Indication: ADRENAL DISORDER
     Dosage: 5 MG, TWICE DAILY (ONCE EVERY 12 HOURS)
     Route: 048
     Dates: start: 201712
  4. INLYTA [Suspect]
     Active Substance: AXITINIB
     Dosage: 1 MG, UNK
     Route: 048
  5. LOSARTAN POTASSIUM. [Concomitant]
     Active Substance: LOSARTAN POTASSIUM
     Indication: BLOOD PRESSURE ABNORMAL
     Dosage: 25 MG, ONCE DAILY
     Route: 048
  6. INLYTA [Suspect]
     Active Substance: AXITINIB
     Indication: RENAL CANCER
     Dosage: 5 MG, TWICE DAILY (ONCE EVERY 12 HOURS)
     Route: 048
  7. SYNTHROID [Concomitant]
     Active Substance: LEVOTHYROXINE SODIUM
     Indication: THYROID DISORDER
     Dosage: 112 UG, ONCE DAILY
     Route: 048

REACTIONS (17)
  - Decreased appetite [Unknown]
  - Neoplasm progression [Unknown]
  - Migraine [Unknown]
  - Diarrhoea [Not Recovered/Not Resolved]
  - Pain [Not Recovered/Not Resolved]
  - Headache [Recovered/Resolved]
  - Weight decreased [Unknown]
  - Influenza [Not Recovered/Not Resolved]
  - Limb discomfort [Not Recovered/Not Resolved]
  - Memory impairment [Unknown]
  - Polyuria [Unknown]
  - Gait disturbance [Unknown]
  - Disturbance in attention [Unknown]
  - Urinary tract infection [Unknown]
  - Respiratory disorder [Unknown]
  - Spinal stenosis [Unknown]
  - Fatigue [Not Recovered/Not Resolved]

NARRATIVE: CASE EVENT DATE: 201712
